FAERS Safety Report 8417621-1 (Version None)
Quarter: 2012Q2

REPORT INFORMATION
  Report Type: 
  Country: None (occurrence: None)
  Receive Date: 20120606
  Receipt Date: 20120531
  Transmission Date: 20120825
  Serious: Yes (Hospitalization)
  Sender: FDA-Public Use
  Company Number: CA-ROCHE-GNE291537

PATIENT
  Sex: Female
  Weight: 136 kg

DRUGS (6)
  1. PREDNISONE TAB [Concomitant]
     Indication: PRODUCT USED FOR UNKNOWN INDICATION
  2. XOLAIR [Suspect]
     Indication: ASTHMA
     Route: 058
     Dates: start: 20090922
  3. XOLAIR [Suspect]
     Route: 058
     Dates: start: 20091229
  4. XOLAIR [Suspect]
     Route: 058
     Dates: start: 20091020
  5. OXEZE [Concomitant]
     Indication: PRODUCT USED FOR UNKNOWN INDICATION
  6. ANTIBIOTICS (NOT SPECIFIED) [Concomitant]
     Indication: PRODUCT USED FOR UNKNOWN INDICATION

REACTIONS (7)
  - BRONCHITIS [None]
  - DYSPNOEA [None]
  - COUGH [None]
  - ASTHMA [None]
  - HYPERSENSITIVITY [None]
  - SUPERINFECTION [None]
  - NASOPHARYNGITIS [None]
